FAERS Safety Report 8581790-3 (Version None)
Quarter: 2012Q3

REPORT INFORMATION
  Report Type: 
  Country: None (occurrence: None)
  Receive Date: 20120809
  Receipt Date: 20120808
  Transmission Date: 20120928
  Serious: Yes (Death)
  Sender: FDA-Public Use
  Company Number: PHHY2012AU068352

PATIENT
  Sex: Female

DRUGS (6)
  1. CRESTOR [Concomitant]
     Indication: LIPIDS
     Dosage: 40 MG, 1 AT NIGHT
     Route: 048
  2. ZOLOFT [Concomitant]
     Indication: DEPRESSION
     Dosage: 100 MG, ONE DAILY
     Route: 048
  3. ZOLEDRONOC ACID [Suspect]
     Dosage: 5 MG, UNK
     Route: 042
     Dates: start: 20100303
  4. ATENOLOL [Concomitant]
     Indication: BLOOD PRESSURE
     Dosage: 50 MG, ONCE DAILY
     Route: 048
  5. LEVOTHYROXINE SODIUM [Concomitant]
     Indication: THYROID DISORDER
     Dosage: 100 UG, ONE DAILY
     Route: 048
  6. CODEINE PO4 [Concomitant]
     Indication: PAIN
     Dosage: 30 MG, PRN
     Route: 048

REACTIONS (5)
  - COLITIS ULCERATIVE [None]
  - UROSEPSIS [None]
  - ACUTE MYOCARDIAL INFARCTION [None]
  - GLOMERULAR FILTRATION RATE DECREASED [None]
  - CARDIAC FAILURE [None]
